FAERS Safety Report 23531735 (Version 1)
Quarter: 2024Q1

REPORT INFORMATION
  Report Type: Spontaneous
  Country: US (occurrence: None)
  Receive Date: 20240215
  Receipt Date: 20240215
  Transmission Date: 20240410
  Serious: Yes (Other)
  Sender: FDA-Public Use
  Company Number: None

PATIENT
  Age: 54 Year
  Sex: Female
  Weight: 69.75 kg

DRUGS (1)
  1. TREMFYA [Suspect]
     Active Substance: GUSELKUMAB
     Indication: Psoriatic arthropathy
     Dates: start: 20231115, end: 20240212

REACTIONS (8)
  - Abdominal distension [None]
  - Gastrointestinal disorder [None]
  - Swelling [None]
  - Abdominal pain [None]
  - Constipation [None]
  - Pelvic pain [None]
  - Abdominal pain upper [None]
  - Intestinal ulcer [None]

NARRATIVE: CASE EVENT DATE: 20231118
